FAERS Safety Report 15293010 (Version 2)
Quarter: 2018Q3

REPORT INFORMATION
  Report Type: Spontaneous
  Country: FR (occurrence: FR)
  Receive Date: 20180819
  Receipt Date: 20180910
  Transmission Date: 20181010
  Serious: Yes (Other)
  Sender: FDA-Public Use
  Company Number: FR-009507513-1808FRA005517

PATIENT
  Age: 83 Year
  Sex: Male
  Weight: 72 kg

DRUGS (1)
  1. KEYTRUDA [Suspect]
     Active Substance: PEMBROLIZUMAB
     Indication: SQUAMOUS CELL CARCINOMA OF LUNG
     Dosage: 2 MG/KG, Q3W
     Route: 042
     Dates: start: 20171025, end: 201806

REACTIONS (2)
  - Mucosal inflammation [Recovered/Resolved]
  - Oral lichen planus [Recovered/Resolved]

NARRATIVE: CASE EVENT DATE: 20180226
